FAERS Safety Report 10067868 (Version 1)
Quarter: 2014Q2

REPORT INFORMATION
  Report Type: Spontaneous
  Country: CH (occurrence: CH)
  Receive Date: 20140409
  Receipt Date: 20140409
  Transmission Date: 20141212
  Serious: Yes (Other)
  Sender: FDA-Public Use
  Company Number: CH-BAYER-2014-047750

PATIENT
  Age: 50 Year
  Sex: Male

DRUGS (1)
  1. CIPROXIN INFUSION 0.1 [Suspect]
     Indication: DEVICE RELATED INFECTION

REACTIONS (2)
  - Impaired healing [None]
  - Drug ineffective [None]
